FAERS Safety Report 8835708 (Version 3)
Quarter: 2013Q2

REPORT INFORMATION
  Report Type: Spontaneous
  Country: FR (occurrence: FR)
  Receive Date: 20121011
  Receipt Date: 20130513
  Transmission Date: 20140414
  Serious: Yes (Hospitalization)
  Sender: FDA-Public Use
  Company Number: FR-ASTRAZENECA-2012SE76597

PATIENT
  Age: 0 Day
  Sex: Female
  Weight: 1.2 kg

DRUGS (24)
  1. INEXIUM [Suspect]
     Route: 064
     Dates: end: 20130325
  2. PERFALGAN [Suspect]
     Route: 064
     Dates: start: 20120324, end: 20120325
  3. TAZOCILLINE [Suspect]
     Route: 064
     Dates: start: 20120316, end: 20120320
  4. PROPOFOL [Suspect]
     Route: 064
     Dates: start: 20120310, end: 20120316
  5. EMLA [Suspect]
     Route: 064
     Dates: start: 20120426
  6. CLINOMEL N7 [Suspect]
     Route: 064
     Dates: start: 20120326
  7. KABIVEN [Suspect]
     Route: 064
     Dates: start: 20120304, end: 20120316
  8. AMOXICILLINE [Suspect]
     Route: 064
     Dates: start: 20120304, end: 20120316
  9. TRACTOCILE [Suspect]
     Route: 064
     Dates: start: 20120324, end: 20120326
  10. ATRACURIUM [Suspect]
     Route: 064
     Dates: start: 20120304, end: 201203
  11. CELESTENE [Suspect]
     Route: 064
     Dates: start: 20120316, end: 20120317
  12. CELESTENE [Suspect]
     Route: 064
     Dates: start: 20120424, end: 20120425
  13. CEFTRIAXONZE BASE [Suspect]
     Route: 064
     Dates: start: 20120304, end: 20120311
  14. LOVENOX [Suspect]
     Route: 064
     Dates: end: 20120326
  15. FUMAFER [Suspect]
     Route: 064
     Dates: start: 20120304, end: 20120316
  16. KETAMINE [Suspect]
     Route: 064
     Dates: start: 20120317, end: 20120320
  17. MIDAZOLAM [Suspect]
     Route: 064
     Dates: start: 20120317, end: 20120317
  18. MIDAZOLAM [Suspect]
     Route: 064
     Dates: start: 20120304, end: 20120323
  19. ZOPHREN [Suspect]
     Route: 064
     Dates: end: 20120324
  20. TAMIFLU [Suspect]
     Route: 064
     Dates: start: 20120310, end: 20120316
  21. RULID [Suspect]
     Route: 064
     Dates: start: 20120310, end: 20120316
  22. SUFENTANYL [Suspect]
     Route: 064
     Dates: start: 20120317, end: 20120317
  23. SUFENTANYL [Suspect]
     Route: 064
     Dates: start: 20120318, end: 20120318
  24. SUFENTANYL [Suspect]
     Route: 064
     Dates: start: 20120304, end: 20120323

REACTIONS (5)
  - Premature baby [Unknown]
  - Foetal growth restriction [Recovering/Resolving]
  - Feeding disorder neonatal [Recovered/Resolved]
  - Device related sepsis [Recovered/Resolved]
  - Apnoea neonatal [Recovered/Resolved]
